FAERS Safety Report 6307247-8 (Version None)
Quarter: 2009Q3

REPORT INFORMATION
  Report Type: 
  Country: None (occurrence: None)
  Receive Date: 20090813
  Receipt Date: 20090805
  Transmission Date: 20100115
  Serious: Yes (Hospitalization)
  Sender: FDA-Public Use
  Company Number: US-BAYER-200928218NA

PATIENT
  Sex: Female

DRUGS (3)
  1. BETASERON [Suspect]
     Indication: RELAPSING-REMITTING MULTIPLE SCLEROSIS
     Dosage: TOTAL DAILY DOSE: 8 MIU
     Dates: start: 20000101
  2. AMANTADINE HCL [Concomitant]
  3. KLONOPIN [Concomitant]

REACTIONS (2)
  - BENIGN LUNG NEOPLASM [None]
  - NASOPHARYNGITIS [None]
